FAERS Safety Report 24055725 (Version 1)
Quarter: 2024Q3

REPORT INFORMATION
  Report Type: Spontaneous
  Country: CN (occurrence: CN)
  Receive Date: 20240705
  Receipt Date: 20240705
  Transmission Date: 20241017
  Serious: Yes (Other)
  Sender: MERCK
  Company Number: CN-009507513-2407CHN000224

PATIENT
  Age: 59 Year
  Sex: Female
  Weight: 65 kg

DRUGS (2)
  1. CILASTATIN SODIUM\IMIPENEM [Suspect]
     Active Substance: CILASTATIN SODIUM\IMIPENEM
     Indication: Anti-infective therapy
     Dosage: 0.5 G, Q6H, IV DRIP
     Route: 041
     Dates: start: 20240624, end: 20240625
  2. SODIUM CHLORIDE [Concomitant]
     Active Substance: SODIUM CHLORIDE
     Indication: Medication dilution
     Dosage: 100 ML, Q6H, IV DRIP
     Route: 041
     Dates: start: 20240624, end: 20240625

REACTIONS (3)
  - Epilepsy [Recovered/Resolved]
  - Central nervous system lesion [Unknown]
  - Cerebral calcification [Unknown]

NARRATIVE: CASE EVENT DATE: 20240625
